FAERS Safety Report 10783298 (Version 1)
Quarter: 2015Q1

REPORT INFORMATION
  Report Type: Spontaneous
  Country: US (occurrence: US)
  Receive Date: 20150210
  Receipt Date: 20150210
  Transmission Date: 20150721
  Serious: No
  Sender: FDA-Public Use
  Company Number: US-GLAXOSMITHKLINE-A1087990A

PATIENT

DRUGS (3)
  1. LEXAPRO [Concomitant]
     Active Substance: ESCITALOPRAM OXALATE
  2. NICORETTE [Suspect]
     Active Substance: NICOTINE
  3. CHANTIX [Suspect]
     Active Substance: VARENICLINE TARTRATE
     Indication: NICOTINE DEPENDENCE

REACTIONS (6)
  - Nicotine dependence [Unknown]
  - Sluggishness [Unknown]
  - Headache [Unknown]
  - Nervousness [Unknown]
  - Nausea [Unknown]
  - Feeling abnormal [Unknown]
